FAERS Safety Report 25334760 (Version 1)
Quarter: 2025Q2

REPORT INFORMATION
  Report Type: Spontaneous
  Country: GB (occurrence: GB)
  Receive Date: 20250520
  Receipt Date: 20250520
  Transmission Date: 20250716
  Serious: Yes (Hospitalization, Other)
  Sender: AMGEN
  Company Number: GB-AMGEN-GBRSP2025095292

PATIENT

DRUGS (1)
  1. ADALIMUMAB [Suspect]
     Active Substance: ADALIMUMAB
     Indication: Inflammatory bowel disease
     Route: 065

REACTIONS (24)
  - Inflammatory bowel disease [Unknown]
  - Hodgkin^s disease [Unknown]
  - Brain abscess [Unknown]
  - Osteomyelitis [Unknown]
  - Treatment failure [Unknown]
  - Psoriasis [Unknown]
  - Injection site pain [Unknown]
  - Injection site swelling [Unknown]
  - Alopecia [Unknown]
  - Lethargy [Unknown]
  - Fatigue [Unknown]
  - Dizziness [Unknown]
  - Skin reaction [Unknown]
  - Therapy non-responder [Unknown]
  - Surgery [Unknown]
  - Fear of injection [Unknown]
  - Drug specific antibody present [Unknown]
  - Hypersensitivity [Unknown]
  - Loss of therapeutic response [Unknown]
  - Herpes zoster [Unknown]
  - Folliculitis [Unknown]
  - Rash maculo-papular [Unknown]
  - Skin candida [Unknown]
  - Impetigo [Unknown]
